FAERS Safety Report 7132111-4 (Version None)
Quarter: 2010Q4

REPORT INFORMATION
  Report Type: 
  Country: None (occurrence: None)
  Receive Date: 20101124
  Receipt Date: 20101124
  Transmission Date: 20110411
  Serious: Yes (Life-Threatening, Other)
  Sender: FDA-Public Use
  Company Number: None

PATIENT

DRUGS (3)
  1. ROCEPHIN [Suspect]
  2. CIPRO [Suspect]
  3. ERYTHROMYCIN [Suspect]

REACTIONS (1)
  - RENAL FAILURE ACUTE [None]
